FAERS Safety Report 4562684-7 (Version None)
Quarter: 2005Q1

REPORT INFORMATION
  Report Type: 
  Country: None (occurrence: None)
  Receive Date: 20050124
  Receipt Date: 20050112
  Transmission Date: 20050727
  Serious: Yes (Life-Threatening, Hospitalization)
  Sender: FDA-Public Use
  Company Number: 2005014057

PATIENT
  Age: 78 Year
  Sex: Female

DRUGS (4)
  1. PREDNISOLONE [Suspect]
     Indication: TEMPORAL ARTERITIS
     Dosage: (60 MG), ORAL
     Route: 048
     Dates: start: 20001112, end: 20041201
  2. ASPIRIN [Concomitant]
  3. NAVISPARE (AMILORIDE HYDROCHLORIDE, CYCLOPENTHIAZIDE) [Concomitant]
  4. NITROGLYCERIN [Concomitant]

REACTIONS (2)
  - ANXIETY [None]
  - DEPRESSION [None]
